FAERS Safety Report 11404109 (Version 1)
Quarter: 2015Q3

REPORT INFORMATION
  Report Type: Spontaneous
  Country: US (occurrence: US)
  Receive Date: 20150821
  Receipt Date: 20150821
  Transmission Date: 20151125
  Serious: Yes (Other)
  Sender: FDA-Public Use
  Company Number: US-UCBSA-2015026223

PATIENT
  Age: 59 Year
  Sex: Female

DRUGS (2)
  1. VIMPAT [Suspect]
     Active Substance: LACOSAMIDE
     Dosage: 150 MG, 2X/DAY (BID)
  2. VIMPAT [Suspect]
     Active Substance: LACOSAMIDE
     Indication: SEIZURE LIKE PHENOMENA
     Dosage: 100 MG, 2X/DAY (BID)

REACTIONS (2)
  - Stevens-Johnson syndrome [Recovered/Resolved]
  - Seizure [Unknown]
